FAERS Safety Report 21015799 (Version 1)
Quarter: 2022Q2

REPORT INFORMATION
  Report Type: Spontaneous
  Country: US (occurrence: None)
  Receive Date: 20220627
  Receipt Date: 20220627
  Transmission Date: 20220721
  Serious: No
  Sender: FDA-Public Use
  Company Number: None

PATIENT
  Age: 40 Year
  Sex: Female
  Weight: 124.74 kg

DRUGS (1)
  1. COSENTYX [Suspect]
     Active Substance: SECUKINUMAB
     Indication: Psoriasis
     Dosage: INJECTE 300MG (2 PENS) SUBCUTANEOUSLY EVERY WEEK FOR 5 WEEKS AS DIRECTED
     Route: 058
     Dates: start: 202103

REACTIONS (2)
  - Infection [None]
  - Therapy interrupted [None]
